FAERS Safety Report 6944504-6 (Version None)
Quarter: 2010Q3

REPORT INFORMATION
  Report Type: 
  Country: None (occurrence: None)
  Receive Date: 20100827
  Receipt Date: 20100819
  Transmission Date: 20110219
  Serious: Yes (Other)
  Sender: FDA-Public Use
  Company Number: CN-PFIZER INC-2010104231

PATIENT
  Age: 31 Year
  Sex: Female

DRUGS (2)
  1. ZELDOX [Suspect]
     Indication: ANXIETY
     Dosage: 1/2 CAPSULE (20 MG/CAPSULE) AFTER DINNER EVERYDAY
     Route: 048
     Dates: start: 20100701
  2. ZELDOX [Suspect]
     Indication: DEPRESSION

REACTIONS (5)
  - DIZZINESS [None]
  - EYE SWELLING [None]
  - INCORRECT DOSE ADMINISTERED [None]
  - INSOMNIA [None]
  - VISION BLURRED [None]
